FAERS Safety Report 4787378-4 (Version None)
Quarter: 2005Q4

REPORT INFORMATION
  Report Type: 
  Country: None (occurrence: None)
  Receive Date: 20051003
  Receipt Date: 20050630
  Transmission Date: 20060501
  Serious: Yes (Hospitalization, Other)
  Sender: FDA-Public Use
  Company Number: 2005074692

PATIENT
  Age: 39 Year
  Sex: Female

DRUGS (4)
  1. AZULFIDINE EN-TABS [Suspect]
     Indication: RHEUMATOID ARTHRITIS
     Dosage: 1 GRAM (0.5 GRAM, 2 IN 1 D), ORAL
     Route: 048
     Dates: start: 20050402, end: 20050522
  2. RIMATIL (BUCILLAMINE) [Concomitant]
  3. ETODOLAC [Concomitant]
  4. MUCOSTA (REBAMIPIDE) [Concomitant]

REACTIONS (6)
  - ALANINE AMINOTRANSFERASE INCREASED [None]
  - ASPARTATE AMINOTRANSFERASE INCREASED [None]
  - FATIGUE [None]
  - LIVER DISORDER [None]
  - PYREXIA [None]
  - RASH GENERALISED [None]
